FAERS Safety Report 6117805-1 (Version None)
Quarter: 2009Q1

REPORT INFORMATION
  Report Type: 
  Country: None (occurrence: None)
  Receive Date: 20090314
  Receipt Date: 20090128
  Transmission Date: 20090719
  Serious: No
  Sender: FDA-Public Use
  Company Number: US-ABBOTT-09P-163-0500817-00

PATIENT
  Sex: Male
  Weight: 103.51 kg

DRUGS (3)
  1. HUMIRA [Suspect]
     Indication: CROHN'S DISEASE
     Route: 058
     Dates: start: 20081222, end: 20081222
  2. HUMIRA [Suspect]
     Route: 058
     Dates: start: 20090101, end: 20090101
  3. HUMIRA [Suspect]
     Route: 058
     Dates: start: 20090101

REACTIONS (1)
  - EPISTAXIS [None]
